FAERS Safety Report 7795691-1 (Version None)
Quarter: 2011Q4

REPORT INFORMATION
  Report Type: 
  Country: None (occurrence: None)
  Receive Date: 20111004
  Receipt Date: 20110930
  Transmission Date: 20120403
  Serious: Yes (Hospitalization)
  Sender: FDA-Public Use
  Company Number: US-BRISTOL-MYERS SQUIBB COMPANY-15865587

PATIENT
  Age: 66 Year
  Sex: Male
  Weight: 82 kg

DRUGS (1)
  1. IPILIMUMAB [Suspect]
     Indication: MALIGNANT MELANOMA
     Dosage: LAST DOSE:09JUN2011, DOSE 10 MG/KG
     Route: 042
     Dates: start: 20110428, end: 20110609

REACTIONS (5)
  - RECTAL HAEMORRHAGE [None]
  - COLITIS [None]
  - DIARRHOEA [None]
  - VOMITING [None]
  - NAUSEA [None]
